FAERS Safety Report 9164693 (Version 1)
Quarter: 2013Q1

REPORT INFORMATION
  Report Type: Spontaneous
  Country: US (occurrence: None)
  Receive Date: 20130301
  Receipt Date: 20130301
  Transmission Date: 20140127
  Serious: Yes (Hospitalization)
  Sender: FDA-Public Use
  Company Number: SYM-2013-00935

PATIENT
  Age: 63 Year
  Sex: Male

DRUGS (3)
  1. CARDIZEM (DILTIAZEM) (UNKNOWN) (DILTIAZEM) [Suspect]
     Indication: PRODUCT USED FOR UNKNOWN INDICATION
  2. LISINOPRIL(LISINOPRIL)(LISINOPRIL) [Concomitant]
  3. AMLODIPINE(AMLODIPINE)(UNKNOWN)(AMLODIPINE) [Concomitant]

REACTIONS (3)
  - Jaw disorder [None]
  - Pharyngeal oedema [None]
  - Swelling [None]
